FAERS Safety Report 21770859 (Version 1)
Quarter: 2022Q4

REPORT INFORMATION
  Report Type: Other
  Country: IT (occurrence: None)
  Receive Date: 20221223
  Receipt Date: 20221223
  Transmission Date: 20230112
  Serious: Yes (Other)
  Sender: FDA-Public Use
  Company Number: None

PATIENT
  Age: 69 Year
  Sex: Female
  Weight: 83 kg

DRUGS (2)
  1. PERTUZUMAB [Suspect]
     Active Substance: PERTUZUMAB
     Indication: Invasive ductal breast carcinoma
     Dosage: DOSAGGIO: 420?UNITA DI MISURA: MILLIGRAMMI?FREQUENZA SOMMINISTRAZIONE: CICLICA?VIA SOMMINISTRAZIONE:
     Route: 042
     Dates: start: 20221207, end: 20221207
  2. TRIMETON [Concomitant]
     Active Substance: CHLORPHENIRAMINE MALEATE
     Dosage: DOSAGGIO: 1 FL?VIA SOMMINISTRAZIONE: ENDOVENOSA
     Route: 042
     Dates: start: 20221207, end: 20221207

REACTIONS (4)
  - Retching [Recovered/Resolved]
  - Hyperhidrosis [Recovered/Resolved]
  - Nausea [Recovered/Resolved]
  - Loss of consciousness [Recovered/Resolved]

NARRATIVE: CASE EVENT DATE: 20221207
